FAERS Safety Report 10235627 (Version 1)
Quarter: 2014Q2

REPORT INFORMATION
  Report Type: Spontaneous
  Country: US (occurrence: US)
  Receive Date: 20140613
  Receipt Date: 20140613
  Transmission Date: 20141212
  Serious: Yes (Hospitalization)
  Sender: FDA-Public Use
  Company Number: US-ABBVIE-14P-163-1245794-00

PATIENT
  Age: 75 Year
  Sex: Male

DRUGS (4)
  1. DEPAKOTE DR [Suspect]
     Indication: CONVULSION
  2. HYDROCHLOROTHIAZIDE [Concomitant]
     Indication: HYPERTENSION
  3. SIMVASTATIN [Concomitant]
     Indication: BLOOD CHOLESTEROL INCREASED
  4. ASPIRIN [Concomitant]
     Indication: CARDIAC DISORDER

REACTIONS (5)
  - Subdural haematoma [Recovered/Resolved]
  - Fall [Recovered/Resolved]
  - Psychotic disorder [Recovering/Resolving]
  - Mean cell volume increased [Not Recovered/Not Resolved]
  - Chronic obstructive pulmonary disease [Recovered/Resolved]
